FAERS Safety Report 5363367-6 (Version None)
Quarter: 2007Q2

REPORT INFORMATION
  Report Type: 
  Country: None (occurrence: None)
  Receive Date: 20070620
  Receipt Date: 20070612
  Transmission Date: 20071010
  Serious: Yes (Hospitalization)
  Sender: FDA-Public Use
  Company Number: HQWYE584912JUN07

PATIENT
  Age: 69 Year
  Sex: Female

DRUGS (3)
  1. INDERAL LA [Suspect]
     Indication: HYPERTENSION
     Route: 048
     Dates: start: 20061116, end: 20070424
  2. URINORM [Suspect]
     Indication: HYPERURICAEMIA
     Route: 048
     Dates: start: 20060821, end: 20070528
  3. ADALAT [Suspect]
     Indication: HYPERTENSION
     Route: 048
     Dates: start: 20061013, end: 20070424

REACTIONS (1)
  - LIVER FUNCTION TEST ABNORMAL [None]
